FAERS Safety Report 16013307 (Version 1)
Quarter: 2019Q1

REPORT INFORMATION
  Report Type: Spontaneous
  Country: US (occurrence: US)
  Receive Date: 20190227
  Receipt Date: 20190227
  Transmission Date: 20190418
  Serious: Yes (Life-Threatening, Other)
  Sender: FDA-Public Use
  Company Number: None

PATIENT
  Age: 49 Year
  Sex: Female
  Weight: 78.3 kg

DRUGS (2)
  1. SAXENDA [Suspect]
     Active Substance: LIRAGLUTIDE
     Indication: WEIGHT DECREASED
     Dosage: ?          QUANTITY:1 INJECTION(S);OTHER ROUTE:SUB Q?
     Route: 058
     Dates: start: 20170101, end: 20180214
  2. SAXENDA [Suspect]
     Active Substance: LIRAGLUTIDE
     Indication: BLOOD GLUCOSE INCREASED
     Dosage: ?          QUANTITY:1 INJECTION(S);OTHER ROUTE:SUB Q?
     Route: 058
     Dates: start: 20170101, end: 20180214

REACTIONS (2)
  - Plasma cell myeloma [None]
  - Plasma cell leukaemia [None]

NARRATIVE: CASE EVENT DATE: 20180723
